FAERS Safety Report 17701898 (Version 1)
Quarter: 2020Q2

REPORT INFORMATION
  Report Type: Spontaneous
  Country: US (occurrence: US)
  Receive Date: 20200423
  Receipt Date: 20200423
  Transmission Date: 20200714
  Serious: No
  Sender: FDA-Public Use
  Company Number: US-ABBVIE-20K-163-3268727-00

PATIENT
  Age: 41 Year
  Sex: Male

DRUGS (1)
  1. ORILISSA [Suspect]
     Active Substance: ELAGOLIX SODIUM
     Indication: PRODUCT USED FOR UNKNOWN INDICATION
     Route: 048
     Dates: start: 20200206, end: 20200206

REACTIONS (2)
  - Prescription drug used without a prescription [Recovered/Resolved]
  - Product packaging difficult to open [Not Recovered/Not Resolved]

NARRATIVE: CASE EVENT DATE: 20200206
